FAERS Safety Report 19713514 (Version 1)
Quarter: 2021Q3

REPORT INFORMATION
  Report Type: Spontaneous
  Country: US (occurrence: US)
  Receive Date: 20210818
  Receipt Date: 20210818
  Transmission Date: 20211014
  Serious: No
  Sender: FDA-Public Use
  Company Number: US-AUROBINDO-AUR-APL-2021-022808

PATIENT

DRUGS (1)
  1. RIZATRIPTAN BENZOATE ORALLY DISINTEGRATING TABLETS, 10 MG (BASE) [Suspect]
     Active Substance: RIZATRIPTAN BENZOATE
     Indication: MIGRAINE
     Dosage: UNK
     Route: 065

REACTIONS (4)
  - Product quality issue [Unknown]
  - Product solubility abnormal [Unknown]
  - Product taste abnormal [Unknown]
  - Drug ineffective [Unknown]
